FAERS Safety Report 8586301-4 (Version None)
Quarter: 2012Q3

REPORT INFORMATION
  Report Type: 
  Country: None (occurrence: None)
  Receive Date: 20120810
  Receipt Date: 20120730
  Transmission Date: 20120928
  Serious: No
  Sender: FDA-Public Use
  Company Number: US-ASTRAZENECA-2010SE59905

PATIENT
  Age: 54 Year
  Sex: Male
  Weight: 77.1 kg

DRUGS (5)
  1. SEROQUEL XR [Suspect]
     Route: 048
  2. SEROQUEL XR [Suspect]
     Route: 048
  3. SEROQUEL XR [Suspect]
     Indication: SCHIZOPHRENIA
     Route: 048
     Dates: start: 20080101, end: 20101210
  4. CELEXA [Concomitant]
     Indication: DEPRESSION
     Route: 048
     Dates: start: 20080101
  5. SEROQUEL XR [Suspect]
     Indication: BIPOLAR DISORDER
     Route: 048
     Dates: start: 20080101, end: 20101210

REACTIONS (11)
  - ANXIETY [None]
  - TREMOR [None]
  - DECREASED APPETITE [None]
  - HYPERSOMNIA [None]
  - INSOMNIA [None]
  - NERVOUSNESS [None]
  - DEPRESSION [None]
  - AGGRESSION [None]
  - INTENTIONAL DRUG MISUSE [None]
  - RESTLESSNESS [None]
  - HALLUCINATION, VISUAL [None]
